FAERS Safety Report 12406030 (Version 2)
Quarter: 2016Q3

REPORT INFORMATION
  Report Type: Spontaneous
  Country: US (occurrence: US)
  Receive Date: 20160526
  Receipt Date: 20160712
  Transmission Date: 20161109
  Serious: No
  Sender: FDA-Public Use
  Company Number: US-BAYER-2016-084705

PATIENT
  Age: 55 Year
  Sex: Male

DRUGS (5)
  1. LEVITRA [Suspect]
     Active Substance: VARDENAFIL HYDROCHLORIDE TRIHYDRATE
     Indication: ERECTILE DYSFUNCTION
     Dosage: 5 MG, 1/4 TABLET
     Route: 048
     Dates: start: 20160319, end: 20160319
  2. LEVITRA [Suspect]
     Active Substance: VARDENAFIL HYDROCHLORIDE TRIHYDRATE
     Indication: ERECTILE DYSFUNCTION
     Dosage: UNK
     Route: 048
     Dates: start: 2014
  3. LEVITRA [Suspect]
     Active Substance: VARDENAFIL HYDROCHLORIDE TRIHYDRATE
     Indication: ERECTILE DYSFUNCTION
     Dosage: 5 MG, 1/4 TABLET
     Route: 048
     Dates: start: 20160324, end: 20160324
  4. LEVITRA [Suspect]
     Active Substance: VARDENAFIL HYDROCHLORIDE TRIHYDRATE
     Indication: ERECTILE DYSFUNCTION
     Dosage: 10 MG, 1/2 TABLET
     Route: 048
     Dates: start: 20160401, end: 20160401
  5. LEVITRA [Suspect]
     Active Substance: VARDENAFIL HYDROCHLORIDE TRIHYDRATE
     Indication: ERECTILE DYSFUNCTION
     Dosage: 10 MG, 1/2 TABLET
     Route: 048
     Dates: start: 20160422, end: 20160422

REACTIONS (5)
  - Product packaging issue [None]
  - Wrong technique in product usage process [Unknown]
  - Flushing [Unknown]
  - Product quality issue [None]
  - Drug ineffective [Unknown]
